FAERS Safety Report 6536917-1 (Version None)
Quarter: 2010Q1

REPORT INFORMATION
  Report Type: 
  Country: None (occurrence: None)
  Receive Date: 20100105
  Receipt Date: 20091221
  Transmission Date: 20100710
  Serious: Yes (Other)
  Sender: FDA-Public Use
  Company Number: 2008001172

PATIENT
  Age: 66 Year
  Sex: Male

DRUGS (9)
  1. ERLOTINIB HYDROCHLORIDE [Suspect]
     Indication: LUNG ADENOCARCINOMA
     Dosage: (150 MG,QD), ORAL
     Route: 048
     Dates: start: 20080327, end: 20080421
  2. IRESSA [Suspect]
     Indication: LUNG ADENOCARCINOMA
     Dosage: ORAL
     Route: 048
     Dates: start: 20080206, end: 20080326
  3. LOXONIN (LOXOPROFEN SODIUM) [Concomitant]
  4. VINORELBINE [Concomitant]
  5. ISOSORBIDE (ISOSORBIDE) [Concomitant]
  6. FAMOTIDINE [Concomitant]
  7. GLYCEROL 2.6% [Concomitant]
  8. TOLTERODINE TARTRATE [Concomitant]
  9. HARNAL (TAMSULOSIN HYDROCHLORIDE) [Concomitant]

REACTIONS (4)
  - DERMATITIS [None]
  - MALIGNANT NEOPLASM PROGRESSION [None]
  - NON-SMALL CELL LUNG CANCER [None]
  - ULCERATIVE KERATITIS [None]
